FAERS Safety Report 9966333 (Version 2)
Quarter: 2014Q1

REPORT INFORMATION
  Report Type: Report from Study
  Country: US (occurrence: US)
  Receive Date: 20140305
  Receipt Date: 20140305
  Transmission Date: 20141002
  Serious: No
  Sender: FDA-Public Use
  Company Number: US-ABBVIE-13P-163-1107954-00

PATIENT
  Age: 23 Year
  Sex: Female

DRUGS (9)
  1. HUMIRA [Suspect]
     Indication: CROHN^S DISEASE
     Dates: start: 20130510, end: 20130628
  2. PANTOPRAZOLE [Concomitant]
     Indication: GASTROOESOPHAGEAL REFLUX DISEASE
  3. PROBIOTICS [Concomitant]
     Indication: PRODUCT USED FOR UNKNOWN INDICATION
  4. ZYRTEC [Concomitant]
     Indication: HYPERSENSITIVITY
  5. IRON [Concomitant]
     Indication: MINERAL SUPPLEMENTATION
     Dosage: 44MG/5ML
  6. SLORINES TAB [Concomitant]
     Indication: CARDIAC DISORDER
  7. MITADRINE [Concomitant]
     Indication: CARDIAC DISORDER
  8. PRENATAL VITAMINS [Concomitant]
     Indication: PRODUCT USED FOR UNKNOWN INDICATION
  9. METOPROLOL [Concomitant]
     Indication: CARDIAC DISORDER

REACTIONS (7)
  - Acne [Not Recovered/Not Resolved]
  - Injection site pain [Unknown]
  - Contusion [Unknown]
  - Haematuria [Unknown]
  - Mouth haemorrhage [Recovered/Resolved]
  - Back pain [Unknown]
  - Oesophageal stenosis [Unknown]
